FAERS Safety Report 7206922-0 (Version None)
Quarter: 2011Q1

REPORT INFORMATION
  Report Type: 
  Country: None (occurrence: None)
  Receive Date: 20110103
  Receipt Date: 20101215
  Transmission Date: 20110831
  Serious: Yes (Congenital Anomaly)
  Sender: FDA-Public Use
  Company Number: A0681657A

PATIENT
  Sex: Male

DRUGS (8)
  1. SUDAFED 12 HOUR [Concomitant]
  2. PAXIL [Concomitant]
     Indication: DEPRESSION
     Dosage: 25MG PER DAY
  3. TOPROL-XL [Concomitant]
  4. ATENOLOL [Concomitant]
     Dosage: 75MG TWICE PER DAY
     Dates: start: 20010101, end: 20070101
  5. PAXIL CR [Suspect]
     Indication: DEPRESSION
     Dosage: 25MG PER DAY
     Dates: start: 20020501
  6. REMERON [Concomitant]
  7. VITAMIN AND MINERAL PRENATAL SUPPLEMENT W/ FOLIC ACID CAP [Concomitant]
  8. VISTARIL [Concomitant]

REACTIONS (4)
  - PULMONARY ARTERY STENOSIS CONGENITAL [None]
  - DRUG EXPOSURE DURING PREGNANCY [None]
  - ATRIAL SEPTAL DEFECT [None]
  - PATENT DUCTUS ARTERIOSUS [None]
